FAERS Safety Report 9078881 (Version 2)
Quarter: 2013Q2

REPORT INFORMATION
  Report Type: Spontaneous
  Country: ES (occurrence: ES)
  Receive Date: 20130215
  Receipt Date: 20130419
  Transmission Date: 20140414
  Serious: Yes (Other)
  Sender: FDA-Public Use
  Company Number: ES-ELI_LILLY_AND_COMPANY-ES201302002119

PATIENT
  Age: 77 Year
  Sex: Male
  Weight: 75 kg

DRUGS (13)
  1. ALIMTA [Suspect]
     Indication: LUNG NEOPLASM MALIGNANT
     Dosage: UNK, OTHER
     Route: 042
     Dates: start: 20130204
  2. PRIMPERAN [Concomitant]
     Indication: NAUSEA
     Dosage: 10 MG, QD
     Route: 048
     Dates: start: 20130204
  3. FORTECORTIN [Concomitant]
     Indication: ADJUVANT THERAPY
     Dosage: 4 MG, QD
     Route: 048
     Dates: start: 20130204
  4. METFORMIN [Concomitant]
     Indication: DIABETES MELLITUS
     Dosage: 850 MG, QD
     Route: 048
  5. ENALAPRIL [Concomitant]
     Indication: HYPERTENSION
     Dosage: 20 MG, QD
     Route: 048
  6. EBIXA [Concomitant]
     Indication: DEMENTIA ALZHEIMER^S TYPE
     Dosage: 20 MG, QD
     Route: 048
  7. IBUPROFENO [Concomitant]
     Indication: PAIN
     Dosage: 600 MG, PRN
     Route: 048
  8. NOLOTIL [Concomitant]
     Indication: PAIN
     Dosage: 575 MG, PRN
     Route: 048
  9. SPIRIVA [Concomitant]
     Indication: CHRONIC OBSTRUCTIVE PULMONARY DISEASE
     Dosage: 18 UG, QD
     Route: 055
  10. SYMBICORT [Concomitant]
     Indication: CHRONIC OBSTRUCTIVE PULMONARY DISEASE
     Dosage: 160 UG, BID
     Route: 055
  11. SYMBICORT [Concomitant]
     Dosage: 4.5 UG, BID
  12. LORMETAZEPAM [Concomitant]
     Indication: INSOMNIA
     Dosage: 1 MG, QD
     Route: 048
  13. ATARAX [Concomitant]
     Indication: PRURITUS
     Dosage: 25 MG, QD
     Route: 048

REACTIONS (1)
  - Hyperglycaemia [Not Recovered/Not Resolved]
